FAERS Safety Report 7601499-X (Version None)
Quarter: 2011Q3

REPORT INFORMATION
  Report Type: 
  Country: None (occurrence: None)
  Receive Date: 20110711
  Receipt Date: 20110630
  Transmission Date: 20111222
  Serious: Yes (Hospitalization)
  Sender: FDA-Public Use
  Company Number: BR-ASTRAZENECA-2011SE39568

PATIENT
  Age: 80 Year
  Sex: Female

DRUGS (7)
  1. ATACAND [Suspect]
     Route: 048
  2. ATACAND HCT [Suspect]
     Route: 048
  3. ANCORON [Concomitant]
     Route: 048
  4. CRESTOR [Suspect]
     Route: 048
  5. VASOPRIL [Concomitant]
     Route: 048
  6. CLOPIDOGREL BISULFATE [Concomitant]
     Route: 048
  7. SUSTRATE [Concomitant]
     Route: 048

REACTIONS (6)
  - VENOUS OCCLUSION [None]
  - HYPERCHOLESTEROLAEMIA [None]
  - CATHETERISATION VENOUS [None]
  - CARDIOVASCULAR DISORDER [None]
  - DYSURIA [None]
  - HOSPITALISATION [None]
